FAERS Safety Report 16611283 (Version 3)
Quarter: 2019Q4

REPORT INFORMATION
  Report Type: Spontaneous
  Country: US (occurrence: US)
  Receive Date: 20190722
  Receipt Date: 20191119
  Transmission Date: 20200122
  Serious: No
  Sender: FDA-Public Use
  Company Number: US-SA-2019SA197502

PATIENT
  Age: 59 Year
  Sex: Female

DRUGS (4)
  1. MELOXICAM. [Concomitant]
     Active Substance: MELOXICAM
  2. ESTRADIOL. [Concomitant]
     Active Substance: ESTRADIOL
  3. DUPIXENT [Suspect]
     Active Substance: DUPILUMAB
     Indication: DERMATITIS ATOPIC
     Dosage: 300 MG, QOW
     Route: 058
     Dates: start: 20190307
  4. TRIAMCINOLON [TRIAMCINOLONE] [Concomitant]

REACTIONS (2)
  - Rash [Recovered/Resolved]
  - Dermatitis atopic [Recovered/Resolved]
